FAERS Safety Report 5496103-3 (Version None)
Quarter: 2007Q4

REPORT INFORMATION
  Report Type: 
  Country: None (occurrence: None)
  Receive Date: 20071025
  Receipt Date: 20070125
  Transmission Date: 20080405
  Serious: No
  Sender: FDA-Public Use
  Company Number: A0637024A

PATIENT
  Age: 59 Year
  Sex: Female

DRUGS (5)
  1. ADVAIR DISKUS 100/50 [Suspect]
     Indication: ASTHMA
     Route: 055
     Dates: start: 20070124
  2. CENTRUM VITAMIN [Concomitant]
  3. CALCIUM [Concomitant]
  4. VITAMIN [Concomitant]
  5. CAFERGOT [Concomitant]

REACTIONS (2)
  - HEADACHE [None]
  - NASAL OEDEMA [None]
